FAERS Safety Report 6198220-1 (Version None)
Quarter: 2009Q2

REPORT INFORMATION
  Report Type: 
  Country: None (occurrence: None)
  Receive Date: 20090515
  Receipt Date: 20081002
  Transmission Date: 20091009
  Serious: Yes (Hospitalization)
  Sender: FDA-Public Use
  Company Number: APP200800945

PATIENT
  Age: 51 Year
  Sex: Female

DRUGS (4)
  1. VANCOMYCIN HYDROCHLORIDE [Suspect]
     Indication: ENDOCARDITIS
     Dosage: 1250 MG, 1 IN 12 HR, INTRAVENOUS
     Route: 042
     Dates: start: 20080927, end: 20080928
  2. VANCOMYCIN (HOSPIRA) (VANCOMYCIN) [Concomitant]
  3. GENTAMICIN [Concomitant]
  4. CUBICIN [Concomitant]

REACTIONS (1)
  - RENAL FAILURE ACUTE [None]
